FAERS Safety Report 24698617 (Version 1)
Quarter: 2024Q4

REPORT INFORMATION
  Report Type: Report from Study
  Country: DE (occurrence: DE)
  Receive Date: 20241204
  Receipt Date: 20241204
  Transmission Date: 20250115
  Serious: Yes (Hospitalization)
  Sender: ABBVIE
  Company Number: DE-ABBVIE-5884350

PATIENT
  Age: 81 Year
  Sex: Female

DRUGS (8)
  1. FOSCARBIDOPA\FOSLEVODOPA [Suspect]
     Active Substance: FOSCARBIDOPA\FOSLEVODOPA
     Indication: Parkinson^s disease
     Dosage: CRN: 0.16 ML/H, CR: 0.18 ML/H, CRH: 0.18 ML/H, ED: 0.15 ML (BLOCKING PERIOD 1 H)?LAST ADMIN DATE:...
     Route: 058
     Dates: start: 202408
  2. FOSCARBIDOPA\FOSLEVODOPA [Suspect]
     Active Substance: FOSCARBIDOPA\FOSLEVODOPA
     Dosage: CRN: 0.31ML/H; CR: 0.42ML/H; CRH: 0.45ML/H; ED: 0.30ML
     Route: 058
     Dates: start: 20240813
  3. PANTOPRAZOLE SODIUM [Concomitant]
     Active Substance: PANTOPRAZOLE SODIUM
     Indication: Product used for unknown indication
  4. OPIPRAMOL [Concomitant]
     Active Substance: OPIPRAMOL
     Indication: Product used for unknown indication
     Dosage: 0-0-0-1
  5. VITAMIN B6 [Concomitant]
     Active Substance: PYRIDOXINE HYDROCHLORIDE
     Indication: Product used for unknown indication
     Dosage: KOMPLEX?1-0-0
  6. CHOLECALCIFEROL [Concomitant]
     Active Substance: CHOLECALCIFEROL
     Indication: Product used for unknown indication
     Dosage: 1-0-0
  7. OMNIFLORA [Concomitant]
     Indication: Product used for unknown indication
     Dosage: 2-2-2?KPS
  8. ZOPICLONE [Concomitant]
     Active Substance: ZOPICLONE
     Indication: Product used for unknown indication
     Dosage: 0-0-0-1

REACTIONS (20)
  - Resting tremor [Recovering/Resolving]
  - Malaise [Not Recovered/Not Resolved]
  - Dysstasia [Not Recovered/Not Resolved]
  - Dermatitis [Unknown]
  - Escherichia urinary tract infection [Unknown]
  - Skin induration [Unknown]
  - Helicobacter gastritis [Unknown]
  - Chronic gastritis [Unknown]
  - Depression [Unknown]
  - Polyneuropathy [Unknown]
  - Vitamin B12 deficiency [Unknown]
  - Folate deficiency [Unknown]
  - Vitamin D deficiency [Unknown]
  - Back pain [Unknown]
  - Hiatus hernia [Unknown]
  - Dysarthria [Unknown]
  - Muscle rigidity [Unknown]
  - Gait inability [Not Recovered/Not Resolved]
  - Dysdiadochokinesis [Unknown]
  - Infection [Unknown]

NARRATIVE: CASE EVENT DATE: 20240101
